FAERS Safety Report 5533566-9 (Version None)
Quarter: 2007Q4

REPORT INFORMATION
  Report Type: 
  Country: None (occurrence: None)
  Receive Date: 20071129
  Receipt Date: 20071121
  Transmission Date: 20080405
  Serious: Yes (Hospitalization)
  Sender: FDA-Public Use
  Company Number: 2007SP021385

PATIENT
  Age: 51 Year
  Sex: Male

DRUGS (3)
  1. PEG-INTRON [Suspect]
     Indication: DRUG USE FOR UNKNOWN INDICATION
     Dosage: 50 MCG; SC
     Route: 058
     Dates: start: 20070101
  2. PEG-INTRON [Suspect]
  3. PEG-INTRON [Suspect]

REACTIONS (9)
  - HYPOAESTHESIA [None]
  - MEDICATION ERROR [None]
  - MUSCLE SPASMS [None]
  - MUSCULOSKELETAL STIFFNESS [None]
  - NONSPECIFIC REACTION [None]
  - PAIN [None]
  - PHARMACEUTICAL PRODUCT COMPLAINT [None]
  - PYREXIA [None]
  - VOMITING [None]
